FAERS Safety Report 19767075 (Version 2)
Quarter: 2021Q3

REPORT INFORMATION
  Report Type: Report from Study
  Country: US (occurrence: US)
  Receive Date: 20210830
  Receipt Date: 20210901
  Transmission Date: 20211014
  Serious: Yes (Other)
  Sender: FDA-Public Use
  Company Number: US-UCBSA-2021009602

PATIENT
  Age: 70 Year
  Sex: Female

DRUGS (3)
  1. LACOSAMIDE. [Suspect]
     Active Substance: LACOSAMIDE
     Dosage: 100MG?1 TAB AM AND 150MG 1 TAB PM
  2. LACOSAMIDE. [Suspect]
     Active Substance: LACOSAMIDE
     Indication: SEIZURE
     Dosage: 150 MILLIGRAM, 2X/DAY (BID)
  3. LACOSAMIDE. [Suspect]
     Active Substance: LACOSAMIDE
     Dosage: PATIENT IS ALSO ON 100MG

REACTIONS (7)
  - Product use issue [Unknown]
  - Confusional state [Not Recovered/Not Resolved]
  - Product packaging issue [Unknown]
  - Upper limb fracture [Not Recovered/Not Resolved]
  - Fall [Not Recovered/Not Resolved]
  - Facial bones fracture [Not Recovered/Not Resolved]
  - Movement disorder [Not Recovered/Not Resolved]

NARRATIVE: CASE EVENT DATE: 20210726
